FAERS Safety Report 8411777-2 (Version None)
Quarter: 2012Q2

REPORT INFORMATION
  Report Type: 
  Country: None (occurrence: None)
  Receive Date: 20120605
  Receipt Date: 20120514
  Transmission Date: 20120825
  Serious: No
  Sender: FDA-Public Use
  Company Number: US-AMGEN-USASP2012030253

PATIENT
  Age: 51 Year
  Sex: Female

DRUGS (1)
  1. ENBREL [Suspect]
     Indication: PSORIATIC ARTHROPATHY
     Dosage: 50 MG, QWK
     Dates: start: 20110824

REACTIONS (5)
  - PAIN IN EXTREMITY [None]
  - CHEST WALL CYST [None]
  - CYST DRAINAGE [None]
  - CYST [None]
  - FATIGUE [None]
